FAERS Safety Report 16921638 (Version 1)
Quarter: 2019Q4

REPORT INFORMATION
  Report Type: Spontaneous
  Country: JP (occurrence: JP)
  Receive Date: 20191015
  Receipt Date: 20191015
  Transmission Date: 20200122
  Serious: Yes (Life-Threatening, Hospitalization, Other)
  Sender: FDA-Public Use
  Company Number: JP-JNJFOC-20190900804

PATIENT
  Age: 70 Year
  Sex: Female
  Weight: 73 kg

DRUGS (4)
  1. RIVAROXABAN [Suspect]
     Active Substance: RIVAROXABAN
     Dosage: 15 MG, QD
     Route: 048
     Dates: start: 20190624, end: 20190930
  2. BILANOA [Concomitant]
     Active Substance: BILASTINE
     Indication: PRURITUS
     Dosage: DAILY DOSE 20 MG
     Dates: start: 20180310, end: 20190618
  3. RIVAROXABAN [Suspect]
     Active Substance: RIVAROXABAN
     Indication: ATRIAL FIBRILLATION
     Dosage: 15 MG, QD
     Route: 048
     Dates: start: 20190311, end: 20190618
  4. JANUVIA [Concomitant]
     Active Substance: SITAGLIPTIN PHOSPHATE
     Indication: DIABETES MELLITUS
     Dosage: DAILY DOSE 50 MG
     Route: 048
     Dates: start: 20180308, end: 20190618

REACTIONS (5)
  - Cerebral disorder [Unknown]
  - Disturbance in attention [Unknown]
  - Abulia [Unknown]
  - Cerebral haemorrhage [Recovered/Resolved with Sequelae]
  - Executive dysfunction [Unknown]

NARRATIVE: CASE EVENT DATE: 20190617
